FAERS Safety Report 6636339-9 (Version None)
Quarter: 2010Q1

REPORT INFORMATION
  Report Type: 
  Country: None (occurrence: None)
  Receive Date: 20100316
  Receipt Date: 20100315
  Transmission Date: 20100710
  Serious: Yes (Hospitalization)
  Sender: FDA-Public Use
  Company Number: BR-ROCHE-624516

PATIENT
  Sex: Male
  Weight: 69 kg

DRUGS (2)
  1. BEVACIZUMAB [Suspect]
     Indication: GASTRIC CANCER
     Dosage: LAST DOSE PRIOR TO SAE WAS ON 11 MARCH 2009
     Route: 050
     Dates: start: 20081015
  2. CAPECITABINE [Suspect]
     Indication: GASTRIC CANCER
     Dosage: FREQUENCY: 2X, UNIT:4;FORM GIVEN AS 1300MG, STRENGTH:150 MG AND 500MG;
     Route: 048
     Dates: start: 20081015

REACTIONS (3)
  - ANAEMIA [None]
  - ASTHENIA [None]
  - TACHYCARDIA [None]
